FAERS Safety Report 7064807-7 (Version None)
Quarter: 2010Q4

REPORT INFORMATION
  Report Type: 
  Country: None (occurrence: None)
  Receive Date: 20101027
  Receipt Date: 19860620
  Transmission Date: 20110411
  Serious: Yes (Death)
  Sender: FDA-Public Use
  Company Number: FR-ROCHE-860102295001

PATIENT
  Age: 56 Year
  Sex: Male
  Weight: 67 kg

DRUGS (1)
  1. CEFTRIAXONE SODIUM [Suspect]
     Route: 065
     Dates: start: 19850927, end: 19850929

REACTIONS (2)
  - PURPURA [None]
  - SEPSIS [None]
